FAERS Safety Report 18255645 (Version 2)
Quarter: 2020Q3

REPORT INFORMATION
  Report Type: Report from Study
  Country: None (occurrence: IE)
  Receive Date: 20200911
  Receipt Date: 20200914
  Transmission Date: 20201103
  Serious: Yes (Death, Hospitalization)
  Sender: FDA-Public Use
  Company Number: IE-ABBVIE-20K-229-3561477-00

PATIENT
  Age: 82 Year
  Sex: Female

DRUGS (11)
  1. ELIQUIS [Concomitant]
     Active Substance: APIXABAN
     Indication: PRODUCT USED FOR UNKNOWN INDICATION
  2. CALCIUM [Concomitant]
     Active Substance: CALCIUM
     Indication: PRODUCT USED FOR UNKNOWN INDICATION
  3. FRUMIL [Concomitant]
     Active Substance: AMILORIDE HYDROCHLORIDE\FUROSEMIDE
  4. NEBIVOLOL. [Concomitant]
     Active Substance: NEBIVOLOL
     Indication: PRODUCT USED FOR UNKNOWN INDICATION
  5. METHOTREXATE. [Concomitant]
     Active Substance: METHOTREXATE
     Indication: PRODUCT USED FOR UNKNOWN INDICATION
  6. VENTOLIN [Concomitant]
     Active Substance: ALBUTEROL SULFATE
     Indication: PRODUCT USED FOR UNKNOWN INDICATION
  7. BETMIGA [Concomitant]
     Active Substance: MIRABEGRON
     Indication: PRODUCT USED FOR UNKNOWN INDICATION
  8. METFORMIN [Concomitant]
     Active Substance: METFORMIN HYDROCHLORIDE
     Indication: PRODUCT USED FOR UNKNOWN INDICATION
  9. HUMIRA [Suspect]
     Active Substance: ADALIMUMAB
     Indication: RHEUMATOID ARTHRITIS
     Route: 058
     Dates: start: 2005
  10. FRUMIL [Concomitant]
     Active Substance: AMILORIDE HYDROCHLORIDE\FUROSEMIDE
     Indication: PRODUCT USED FOR UNKNOWN INDICATION
  11. ESOMEPRAZOLE. [Concomitant]
     Active Substance: ESOMEPRAZOLE MAGNESIUM
     Indication: PRODUCT USED FOR UNKNOWN INDICATION

REACTIONS (7)
  - Cardiac failure congestive [Fatal]
  - Urinary tract infection [Recovering/Resolving]
  - Lower respiratory tract infection [Recovering/Resolving]
  - Cellulitis [Recovering/Resolving]
  - Bronchitis [Not Recovered/Not Resolved]
  - General physical health deterioration [Unknown]
  - Pneumonia [Recovering/Resolving]
